FAERS Safety Report 11291030 (Version 1)
Quarter: 2015Q3

REPORT INFORMATION
  Report Type: Spontaneous
  Country: US (occurrence: US)
  Receive Date: 20150722
  Receipt Date: 20150722
  Transmission Date: 20151125
  Serious: No
  Sender: FDA-Public Use
  Company Number: US-UNITED THERAPEUTICS-UNT-2015-005981

PATIENT
  Sex: Female
  Weight: 56.24 kg

DRUGS (5)
  1. TRACLEER [Concomitant]
     Active Substance: BOSENTAN
     Indication: PRODUCT USED FOR UNKNOWN INDICATION
  2. REVATIO [Concomitant]
     Active Substance: SILDENAFIL CITRATE
     Indication: PRODUCT USED FOR UNKNOWN INDICATION
  3. REMODULIN [Suspect]
     Active Substance: TREPROSTINIL
     Indication: PULMONARY HYPERTENSION
     Dosage: 0.070 ?G/KG/MIN, CONTINUING
     Route: 058
     Dates: start: 20130930
  4. REMODULIN [Suspect]
     Active Substance: TREPROSTINIL
     Dosage: 0.070 ?G/KG/MIN,CONTINUING
     Route: 058
     Dates: start: 20140306
  5. REMODULIN [Suspect]
     Active Substance: TREPROSTINIL
     Dosage: 0.070 ?G/KG/MIN,CONTINUING
     Dates: start: 20140225

REACTIONS (6)
  - Throat irritation [Unknown]
  - Seasonal allergy [Unknown]
  - Infusion site induration [Not Recovered/Not Resolved]
  - Rhinorrhoea [Unknown]
  - Infusion site haematoma [Unknown]
  - Nasopharyngitis [Unknown]
